FAERS Safety Report 7632873-3 (Version None)
Quarter: 2011Q3

REPORT INFORMATION
  Report Type: 
  Country: None (occurrence: None)
  Receive Date: 20110725
  Receipt Date: 20110712
  Transmission Date: 20111222
  Serious: Yes (Hospitalization, Other)
  Sender: FDA-Public Use
  Company Number: PHFR2011IE02234

PATIENT
  Sex: Female

DRUGS (10)
  1. CLOZAPINE [Suspect]
     Indication: SCHIZOPHRENIA, PARANOID TYPE
     Dosage: 75 MG/DAY
     Route: 048
     Dates: start: 19970101, end: 19970101
  2. CLOZAPINE [Suspect]
     Dosage: 350 MG/DAY
     Route: 048
     Dates: start: 20100215
  3. CITALOPRAM HYDROBROMIDE [Concomitant]
     Dosage: 20 MG/DAY
     Route: 048
     Dates: start: 20101001, end: 20110401
  4. OLANZAPINE [Concomitant]
  5. FLUOXETINE [Suspect]
     Dosage: 20 MG/DAY
     Route: 048
     Dates: start: 20100201, end: 20101001
  6. LAMOTRIGINE [Suspect]
     Indication: DEPRESSION
     Dosage: 50 MG/DAY
     Route: 048
     Dates: start: 20100901
  7. VENLAFAXINE [Concomitant]
     Indication: ANTIDEPRESSANT THERAPY
  8. CLOZAPINE [Suspect]
     Dosage: 225 MG/DAY
     Route: 048
     Dates: end: 20110429
  9. ABILIFY [Concomitant]
     Dosage: 10 MG, BID
     Route: 048
     Dates: start: 20101001, end: 20110401
  10. MIRTAZAPINE [Concomitant]
     Indication: ANTIDEPRESSANT THERAPY

REACTIONS (11)
  - TACHYCARDIA [None]
  - HYPOTENSION [None]
  - DRUG INTERACTION [None]
  - ANTIPSYCHOTIC DRUG LEVEL INCREASED [None]
  - RASH [None]
  - MENTAL IMPAIRMENT [None]
  - CACHEXIA [None]
  - HALLUCINATION, AUDITORY [None]
  - WEIGHT DECREASED [None]
  - GENERAL PHYSICAL HEALTH DETERIORATION [None]
  - SOCIAL AVOIDANT BEHAVIOUR [None]
